FAERS Safety Report 6239232-9 (Version None)
Quarter: 2009Q2

REPORT INFORMATION
  Report Type: 
  Country: None (occurrence: None)
  Receive Date: 20090622
  Receipt Date: 20090616
  Transmission Date: 20091009
  Serious: Yes (Life-Threatening)
  Sender: FDA-Public Use
  Company Number: FR-BRISTOL-MYERS SQUIBB COMPANY-14672729

PATIENT
  Age: 85 Year
  Sex: Female
  Weight: 75 kg

DRUGS (9)
  1. GLUCOPHAGE [Suspect]
     Indication: TYPE 2 DIABETES MELLITUS
     Dosage: MIDDAY
     Route: 048
     Dates: start: 20090217, end: 20090220
  2. STAGID [Suspect]
     Indication: TYPE 2 DIABETES MELLITUS
     Dosage: STR:700MG TAB 3FE-05FEB09:2IN1D 5FE-17FEB09:3IN1D 17FE-20FEB09:2IN1D 20FE-19MAR09:3IN1D
     Route: 048
     Dates: start: 20090203, end: 20090319
  3. ATACAND [Concomitant]
  4. ALDALIX [Concomitant]
  5. SOTALOL HYDROCHLORIDE [Concomitant]
  6. REMINYL [Concomitant]
  7. ATHYMIL [Concomitant]
  8. ACTONEL [Concomitant]
  9. CALCIDOSE [Concomitant]

REACTIONS (2)
  - ANAEMIA MEGALOBLASTIC [None]
  - DIARRHOEA [None]
